FAERS Safety Report 8453173-8 (Version None)
Quarter: 2012Q2

REPORT INFORMATION
  Report Type: 
  Country: None (occurrence: None)
  Receive Date: 20120620
  Receipt Date: 20120412
  Transmission Date: 20120825
  Serious: No
  Sender: FDA-Public Use
  Company Number: US-VERTEX PHARMACEUTICALS INC.-AE-2012-006848

PATIENT
  Age: 53 Year
  Sex: Male

DRUGS (5)
  1. INCIVEK [Suspect]
     Indication: HEPATITIS C
     Route: 048
     Dates: start: 20120309, end: 20120401
  2. RIBAVIRIN [Concomitant]
     Indication: HEPATITIS C
     Dates: start: 20120309, end: 20120401
  3. OMEPRAZOLE [Concomitant]
     Indication: OESOPHAGEAL ULCER
  4. PEGASYS [Concomitant]
     Indication: HEPATITIS C
     Dates: start: 20120309, end: 20120401
  5. OMEPRAZOLE [Concomitant]
     Indication: ODYNOPHAGIA

REACTIONS (1)
  - ANAEMIA [None]
